FAERS Safety Report 4607916-1 (Version None)
Quarter: 2005Q1

REPORT INFORMATION
  Report Type: 
  Country: None (occurrence: None)
  Receive Date: 20050310
  Receipt Date: 20050222
  Transmission Date: 20050727
  Serious: Yes (Death, Hospitalization)
  Sender: FDA-Public Use
  Company Number: 2004BI002051

PATIENT
  Age: 77 Year
  Sex: Male
  Weight: 74.8435 kg

DRUGS (1)
  1. AVONEX [Suspect]
     Indication: MULTIPLE SCLEROSIS
     Dosage: 30 UG; QW; IM
     Route: 030
     Dates: start: 20000101, end: 20010101

REACTIONS (6)
  - AORTIC ANEURYSM RUPTURE [None]
  - ARTERIOSCLEROSIS [None]
  - CYSTITIS [None]
  - FALL [None]
  - HAEMORRHOID OPERATION [None]
  - PERIPHERAL VASCULAR DISORDER [None]
